FAERS Safety Report 7717759-8 (Version None)
Quarter: 2011Q3

REPORT INFORMATION
  Report Type: 
  Country: None (occurrence: None)
  Receive Date: 20110817
  Receipt Date: 20100819
  Transmission Date: 20111222
  Serious: Yes (Other)
  Sender: FDA-Public Use
  Company Number: 20109106

PATIENT
  Age: 27 Year
  Sex: Female

DRUGS (4)
  1. BUPIVACAINE HCL [Concomitant]
  2. FENTANYL [Concomitant]
  3. CLONIDINE [Concomitant]
  4. LIORESAL [Suspect]
     Indication: MUSCLE SPASTICITY
     Dosage: IMCG, DAILY,INTRATHECAL
     Route: 037

REACTIONS (5)
  - NAUSEA [None]
  - SWELLING [None]
  - DRUG WITHDRAWAL SYNDROME [None]
  - HYPOAESTHESIA [None]
  - PAIN [None]
